FAERS Safety Report 24991351 (Version 1)
Quarter: 2025Q1

REPORT INFORMATION
  Report Type: Spontaneous
  Country: GR (occurrence: GR)
  Receive Date: 20250220
  Receipt Date: 20250220
  Transmission Date: 20250408
  Serious: Yes (Death, Hospitalization, Other)
  Sender: AMGEN
  Company Number: GR-AMGEN-GRCSP2025031888

PATIENT

DRUGS (1)
  1. BEVACIZUMAB [Suspect]
     Active Substance: BEVACIZUMAB
     Indication: Neoplasm malignant
     Route: 065

REACTIONS (3)
  - Cardiovascular disorder [Fatal]
  - Angina unstable [Unknown]
  - Acute myocardial infarction [Unknown]
